FAERS Safety Report 16113054 (Version 1)
Quarter: 2019Q1

REPORT INFORMATION
  Report Type: Spontaneous
  Country: US (occurrence: US)
  Receive Date: 20190325
  Receipt Date: 20190325
  Transmission Date: 20190418
  Serious: No
  Sender: FDA-Public Use
  Company Number: US-BAYER-2019-055881

PATIENT
  Age: 70 Year
  Sex: Female
  Weight: 63 kg

DRUGS (2)
  1. MIRALAX [Suspect]
     Active Substance: POLYETHYLENE GLYCOL 3350
     Indication: HERNIA
  2. MIRALAX [Suspect]
     Active Substance: POLYETHYLENE GLYCOL 3350
     Indication: CONSTIPATION
     Dosage: 17G IN 8 OR 9 OZ WATER DOSE
     Route: 048
     Dates: start: 201903, end: 20190317

REACTIONS (5)
  - Product taste abnormal [Unknown]
  - Poor quality product administered [Unknown]
  - Off label use [Unknown]
  - Product use in unapproved indication [Unknown]
  - Product odour abnormal [Unknown]
